FAERS Safety Report 24305110 (Version 1)
Quarter: 2024Q3

REPORT INFORMATION
  Report Type: Spontaneous
  Country: CN (occurrence: CN)
  Receive Date: 20240911
  Receipt Date: 20240911
  Transmission Date: 20241017
  Serious: Yes (Other)
  Sender: ACCORD
  Company Number: None

PATIENT
  Age: 52 Year
  Sex: Male
  Weight: 63 kg

DRUGS (8)
  1. TRASTUZUMAB [Suspect]
     Active Substance: TRASTUZUMAB
     Indication: Gastric cancer stage III
     Dosage: 450 MILLIGRAM, QD; IV DRIP
     Route: 042
     Dates: start: 20240725, end: 20240725
  2. SINTILIMAB [Suspect]
     Active Substance: SINTILIMAB
     Indication: Gastric cancer stage III
     Dosage: 200 MILLIGRAM, QD, IV DRIP
     Route: 042
     Dates: start: 20240725, end: 20240725
  3. PACLITAXEL [Suspect]
     Active Substance: PACLITAXEL
     Indication: Gastric cancer stage III
     Dosage: 300 MILLIGRAM, QD; IV DRIP
     Route: 042
     Dates: start: 20240726, end: 20240726
  4. GIMERACIL\OTERACIL\TEGAFUR [Suspect]
     Active Substance: GIMERACIL\OTERACIL POTASSIUM\TEGAFUR
     Indication: Gastric cancer stage III
     Dosage: 60 MILLIGRAM, BID
     Route: 048
     Dates: start: 20240726, end: 20240808
  5. GIMERACIL\OTERACIL\TEGAFUR [Suspect]
     Active Substance: GIMERACIL\OTERACIL POTASSIUM\TEGAFUR
     Indication: Gastric cancer stage III
     Dosage: 60 MILLIGRAM, BID; UNKNOWN
     Route: 048
     Dates: start: 20240821
  6. TRASTUZUMAB [Suspect]
     Active Substance: TRASTUZUMAB
     Indication: Gastric cancer stage III
     Dosage: 40 MILLIGRAM, QD; IV DRIP
     Route: 042
     Dates: start: 20240725, end: 20240725
  7. TRASTUZUMAB [Suspect]
     Active Substance: TRASTUZUMAB
     Indication: Gastric cancer stage III
     Dosage: 360 MILLIGRAM; UNKNOWN
     Route: 042
     Dates: start: 20240820, end: 20240820
  8. PACLITAXEL [Suspect]
     Active Substance: PACLITAXEL
     Indication: Gastric cancer stage III
     Dosage: 300 MILLIGRAM; UNKNOWN
     Route: 042
     Dates: start: 20240821, end: 20240821

REACTIONS (1)
  - Deafness unilateral [Not Recovered/Not Resolved]

NARRATIVE: CASE EVENT DATE: 20240810
